FAERS Safety Report 9099660 (Version 7)
Quarter: 2013Q3

REPORT INFORMATION
  Report Type: Report from Study
  Country: US (occurrence: US)
  Receive Date: 20130215
  Receipt Date: 20130709
  Transmission Date: 20140515
  Serious: Yes (Hospitalization, Other)
  Sender: FDA-Public Use
  Company Number: PHHO2013US002535

PATIENT
  Age: 50 Year
  Sex: Male
  Weight: 71.7 kg

DRUGS (5)
  1. TASIGNA [Suspect]
     Indication: CHRONIC MYELOID LEUKAEMIA
     Dosage: 400 MG, BID
     Route: 048
     Dates: start: 20080220, end: 20130211
  2. MOTRIN [Concomitant]
     Indication: CERVICOBRACHIAL SYNDROME
     Dosage: 400 MG, PRN
     Route: 048
     Dates: start: 200901
  3. MOTRIN [Concomitant]
     Indication: ARTHRITIS
  4. CLARITIN [Concomitant]
     Indication: HYPERSENSITIVITY
     Dates: start: 20100420
  5. ZOLOFT [Concomitant]
     Indication: DEPRESSION
     Dates: start: 20110106

REACTIONS (1)
  - Myocardial infarction [Recovered/Resolved with Sequelae]
